FAERS Safety Report 20232677 (Version 1)
Quarter: 2021Q4

REPORT INFORMATION
  Report Type: Spontaneous
  Country: IT (occurrence: IT)
  Receive Date: 20211227
  Receipt Date: 20211227
  Transmission Date: 20220303
  Serious: Yes (Hospitalization, Other)
  Sender: FDA-Public Use
  Company Number: IT-009507513-2112ITA005306

PATIENT
  Age: 41 Year
  Sex: Female

DRUGS (1)
  1. TEMOZOLOMIDE [Suspect]
     Active Substance: TEMOZOLOMIDE
     Indication: Malignant melanoma
     Dosage: UNK
     Route: 048
     Dates: start: 2012

REACTIONS (13)
  - Intestinal perforation [Unknown]
  - Peritonitis [Unknown]
  - Septic shock [Unknown]
  - Metastases to liver [Unknown]
  - Metastases to central nervous system [Recovered/Resolved]
  - Metastases to kidney [Unknown]
  - Metastases to lung [Unknown]
  - Metastases to abdominal wall [Unknown]
  - Metastases to rectum [Unknown]
  - Metastases to uterus [Recovering/Resolving]
  - Metastases to bone [Recovering/Resolving]
  - Hypothyroidism [Unknown]
  - Product use in unapproved indication [Unknown]

NARRATIVE: CASE EVENT DATE: 20120101
